FAERS Safety Report 24416856 (Version 1)
Quarter: 2024Q4

REPORT INFORMATION
  Report Type: Spontaneous
  Country: US (occurrence: US)
  Receive Date: 20241009
  Receipt Date: 20241009
  Transmission Date: 20250114
  Serious: No
  Sender: CB FLEET
  Company Number: US-PRESTIGE-202401-US-000019

PATIENT
  Sex: Female

DRUGS (2)
  1. MICONAZOLE 1 WALGREENS [Suspect]
     Active Substance: MICONAZOLE NITRATE
     Indication: Fungal infection
     Dosage: USED THE OVULE YESTERDAY
  2. MICONAZOLE 1 WALGREENS [Suspect]
     Active Substance: MICONAZOLE NITRATE

REACTIONS (2)
  - Paraesthesia oral [Not Recovered/Not Resolved]
  - Accidental exposure to product [Unknown]
